FAERS Safety Report 13687439 (Version 3)
Quarter: 2017Q4

REPORT INFORMATION
  Report Type: Report from Study
  Country: None (occurrence: ES)
  Receive Date: 20170624
  Receipt Date: 20171214
  Transmission Date: 20180320
  Serious: Yes (Hospitalization, Other)
  Sender: FDA-Public Use
  Company Number: ES-ABBVIE-17K-144-2006075-00

PATIENT
  Age: 77 Year
  Sex: Male

DRUGS (3)
  1. DUODOPA [Suspect]
     Active Substance: CARBIDOPA\LEVODOPA
     Dosage: 2.8ML CONTINUOUS DOSAGE
     Route: 050
     Dates: start: 201707, end: 2017
  2. DUODOPA [Suspect]
     Active Substance: CARBIDOPA\LEVODOPA
     Indication: PARKINSON^S DISEASE
     Route: 050
     Dates: start: 20131113, end: 20170611
  3. DUODOPA [Suspect]
     Active Substance: CARBIDOPA\LEVODOPA
     Dosage: 2.9ML CONTINUOUS DOSAGE
     Route: 050
     Dates: start: 20171214

REACTIONS (8)
  - Dyskinesia [Recovering/Resolving]
  - Fall [Recovered/Resolved]
  - Contusion [Recovered/Resolved]
  - Loss of consciousness [Recovered/Resolved]
  - Syncope [Recovered/Resolved]
  - Dehydration [Recovering/Resolving]
  - Acute kidney injury [Recovered/Resolved]
  - Hyperthermia [Recovering/Resolving]

NARRATIVE: CASE EVENT DATE: 20170610
